FAERS Safety Report 19382146 (Version 1)
Quarter: 2021Q2

REPORT INFORMATION
  Report Type: Spontaneous
  Country: US (occurrence: US)
  Receive Date: 20210607
  Receipt Date: 20210607
  Transmission Date: 20210717
  Serious: Yes (Other)
  Sender: FDA-Public Use
  Company Number: US-GW PHARMA-202105USGW02728

PATIENT

DRUGS (2)
  1. EPIDIOLEX [Suspect]
     Active Substance: CANNABIDIOL
     Indication: ILLNESS
     Dosage: 2.7 MG/KG DAY, 100 MILLIGRAM, BID (FIRST SHIPPED ON 05 MAY 2021)
     Route: 048
     Dates: start: 202105
  2. IRON [Concomitant]
     Active Substance: IRON
     Indication: PRODUCT USED FOR UNKNOWN INDICATION
     Dosage: 18 MILLIGRAM
     Route: 065

REACTIONS (2)
  - Seizure [Unknown]
  - Drug ineffective [Unknown]

NARRATIVE: CASE EVENT DATE: 202105
